FAERS Safety Report 4290389-9 (Version None)
Quarter: 2004Q1

REPORT INFORMATION
  Report Type: 
  Country: None (occurrence: None)
  Receive Date: 20040206
  Receipt Date: 20040206
  Transmission Date: 20041129
  Serious: Yes (Life-Threatening)
  Sender: FDA-Public Use
  Company Number: None

PATIENT
  Sex: Male
  Weight: 92.9874 kg

DRUGS (1)
  1. COREG [Suspect]
     Indication: CARDIAC FAILURE CONGESTIVE
     Dosage: 25MG BID
     Dates: start: 20040606, end: 20041001

REACTIONS (4)
  - DECREASED ACTIVITY [None]
  - LOSS OF CONSCIOUSNESS [None]
  - OVERDOSE [None]
  - ROAD TRAFFIC ACCIDENT [None]
